FAERS Safety Report 5581676-2 (Version None)
Quarter: 2008Q1

REPORT INFORMATION
  Report Type: 
  Country: None (occurrence: None)
  Receive Date: 20080104
  Receipt Date: 20071221
  Transmission Date: 20080703
  Serious: Yes (Death, Hospitalization)
  Sender: FDA-Public Use
  Company Number: JP-AMGEN-US257601

PATIENT
  Age: 76 Year
  Sex: Female

DRUGS (8)
  1. ENBREL [Suspect]
     Indication: RHEUMATOID ARTHRITIS
     Dosage: DOSE AND FREQUENCY NOT SPECIFIED
     Route: 058
     Dates: start: 20071101, end: 20071129
  2. ETODOLAC [Concomitant]
     Dosage: TABLET DOSE FORM; DOSE AND FREQUENCY NOT SPECIFIED
     Route: 048
  3. VOLTAREN [Concomitant]
     Dosage: TABLET DOSE FORM; DOSE AND FREQUENCY NOT SPECIFIED
     Route: 048
  4. NORVASC [Concomitant]
     Dosage: TABLET DOSE FORM; DOSE AND FREQUENCY NOT SPECIFIED
     Route: 048
  5. ALFACALCIDOL [Concomitant]
     Dosage: NOT SPECIFIED
     Route: 048
  6. AZULFIDINE EN-TABS [Concomitant]
     Dosage: NOT SPECIFIED
     Route: 048
  7. BETAMETHASONE [Concomitant]
     Dosage: DOSE AND FREQUENCY NOT SPECIFIED
     Route: 048
  8. POLAPREZINC [Concomitant]
     Dosage: TABLET DOSE FORM; DOSE AND FREQUENCY NOT SPECIFIED
     Route: 048

REACTIONS (1)
  - CEREBRAL INFARCTION [None]
